FAERS Safety Report 8819864 (Version 2)
Quarter: 2015Q1

REPORT INFORMATION
  Report Type: Report from Study
  Country: US (occurrence: US)
  Receive Date: 20121001
  Receipt Date: 20150202
  Transmission Date: 20150721
  Serious: Yes (Death)
  Sender: FDA-Public Use
  Company Number: US-ROCHE-1130715

PATIENT
  Sex: Male

DRUGS (7)
  1. HERCEPTIN [Suspect]
     Active Substance: TRASTUZUMAB
     Indication: COLON CANCER
     Dosage: LOADING DOSE-336 MG
     Route: 042
     Dates: start: 19981106
  2. TYLENOL [Concomitant]
     Active Substance: ACETAMINOPHEN
  3. CAMPTOSAR [Concomitant]
     Active Substance: IRINOTECAN HYDROCHLORIDE
     Route: 065
  4. OXALIPLATIN. [Concomitant]
     Active Substance: OXALIPLATIN
  5. HERCEPTIN [Suspect]
     Active Substance: TRASTUZUMAB
     Indication: COLON CANCER
  6. 5-FLUOROURACIL [Concomitant]
     Active Substance: FLUOROURACIL
  7. COUMADIN [Concomitant]
     Active Substance: WARFARIN SODIUM
     Route: 065

REACTIONS (14)
  - Malaise [Unknown]
  - Decreased appetite [Unknown]
  - Upper respiratory tract infection [Unknown]
  - Constipation [Unknown]
  - Death [Fatal]
  - Abdominal pain upper [Unknown]
  - Oedema [Unknown]
  - Chills [Unknown]
  - Ascites [Unknown]
  - Back pain [Unknown]
  - Disease progression [Unknown]
  - Off label use [Unknown]
  - Fatigue [Unknown]
  - Diarrhoea [Unknown]
